FAERS Safety Report 8699411 (Version 2)
Quarter: 2015Q4

REPORT INFORMATION
  Report Type: Spontaneous
  Country: US (occurrence: US)
  Receive Date: 20120802
  Receipt Date: 20151023
  Transmission Date: 20160305
  Serious: Yes (Other)
  Sender: FDA-Public Use
  Company Number: US-BRISTOL-MYERS SQUIBB COMPANY-16042913

PATIENT
  Sex: Female

DRUGS (2)
  1. NORVIR [Suspect]
     Active Substance: RITONAVIR
     Indication: PRODUCT USED FOR UNKNOWN INDICATION
     Dosage: 100 MG, QD
     Route: 065
  2. REYATAZ [Suspect]
     Active Substance: ATAZANAVIR SULFATE
     Indication: PRODUCT USED FOR UNKNOWN INDICATION
     Dosage: 300 MG, QD
     Route: 065

REACTIONS (4)
  - Normal newborn [Unknown]
  - Maternal exposure during pregnancy [Recovered/Resolved]
  - Virologic failure [Unknown]
  - Caesarean section [Unknown]

NARRATIVE: CASE EVENT DATE: 2011
